FAERS Safety Report 15876081 (Version 2)
Quarter: 2019Q1

REPORT INFORMATION
  Report Type: Spontaneous
  Country: US (occurrence: US)
  Receive Date: 20190126
  Receipt Date: 20190307
  Transmission Date: 20190417
  Serious: Yes (Other)
  Sender: FDA-Public Use
  Company Number: US-ACORDA-ACO_156273_2018

PATIENT
  Age: 53 Year
  Sex: Female
  Weight: 69.46 kg

DRUGS (11)
  1. REBIF [Suspect]
     Active Substance: INTERFERON BETA-1A
     Indication: PRODUCT USED FOR UNKNOWN INDICATION
     Dosage: UNK
     Route: 065
  2. GABAPENTIN. [Suspect]
     Active Substance: GABAPENTIN
     Indication: PRODUCT USED FOR UNKNOWN INDICATION
     Dosage: UNK
     Route: 065
  3. FLOMAX [Suspect]
     Active Substance: TAMSULOSIN HYDROCHLORIDE
     Indication: MICTURITION URGENCY
  4. VITAMIN B12 [Concomitant]
     Active Substance: CYANOCOBALAMIN
     Indication: PRODUCT USED FOR UNKNOWN INDICATION
     Dosage: UNK
     Route: 065
  5. TYSABRI [Suspect]
     Active Substance: NATALIZUMAB
     Indication: MULTIPLE SCLEROSIS
     Dosage: 300 MILLIGRAM, MONTHLY
     Route: 042
     Dates: start: 201306
  6. MELOXICAM. [Concomitant]
     Active Substance: MELOXICAM
     Indication: PRODUCT USED FOR UNKNOWN INDICATION
     Dosage: UNK
     Route: 065
  7. VITAMIN D [Concomitant]
     Active Substance: CHOLECALCIFEROL
     Indication: PRODUCT USED FOR UNKNOWN INDICATION
     Dosage: 2000 INTERNATIONAL UNIT
     Route: 065
  8. AMPYRA [Suspect]
     Active Substance: DALFAMPRIDINE
     Indication: PRODUCT USED FOR UNKNOWN INDICATION
     Dosage: UNK
     Route: 065
  9. FOLIC ACID. [Concomitant]
     Active Substance: FOLIC ACID
     Indication: PRODUCT USED FOR UNKNOWN INDICATION
     Dosage: UNK
     Route: 065
  10. COPAXONE [Suspect]
     Active Substance: GLATIRAMER ACETATE
     Indication: PRODUCT USED FOR UNKNOWN INDICATION
     Dosage: UNK
     Route: 065
  11. FLOMAX [Suspect]
     Active Substance: TAMSULOSIN HYDROCHLORIDE
     Indication: MULTIPLE SCLEROSIS
     Dosage: 0.4 MILLIGRAM, BID
     Route: 048

REACTIONS (24)
  - Carotid artery stenosis [Unknown]
  - Multiple sclerosis relapse [Recovered/Resolved]
  - Intervertebral disc protrusion [Unknown]
  - Carpal tunnel syndrome [Unknown]
  - Polyneuropathy [Unknown]
  - Restless legs syndrome [Unknown]
  - Multiple sclerosis relapse [Unknown]
  - Loss of consciousness [Recovered/Resolved]
  - Urinary retention [Unknown]
  - Pain in extremity [Unknown]
  - Folate deficiency [Unknown]
  - Muscle spasms [Unknown]
  - Dizziness [Unknown]
  - Supraventricular extrasystoles [Unknown]
  - Vitamin B12 deficiency [Unknown]
  - Syncope [Recovered/Resolved]
  - Secondary progressive multiple sclerosis [Recovered/Resolved]
  - Anxiety [Unknown]
  - Depression [Unknown]
  - Insomnia [Unknown]
  - Memory impairment [Unknown]
  - Drug ineffective [Unknown]
  - Demyelination [Unknown]
  - Spinal osteoarthritis [Unknown]

NARRATIVE: CASE EVENT DATE: 201410
